FAERS Safety Report 8701901 (Version 2)
Quarter: 2012Q4

REPORT INFORMATION
  Report Type: 
  Country: JP (occurrence: JP)
  Receive Date: 20120803
  Receipt Date: 20120919
  Transmission Date: 20130627
  Serious: No
  Sender: FDA-Public Use
  Company Number: JP-MILLENNIUM PHARMACEUTICALS, INC.-2012-05177

PATIENT

DRUGS (2)
  1. VELCADE [Suspect]
     Indication: MULTIPLE MYELOMA
     Dosage: UNK
     Route: 042
     Dates: start: 20120717
  2. VELCADE [Suspect]
     Dosage: UNK
     Route: 058

REACTIONS (2)
  - Injection site vasculitis [Recovered/Resolved]
  - Off label use [Unknown]
